FAERS Safety Report 17095248 (Version 1)
Quarter: 2019Q4

REPORT INFORMATION
  Report Type: Spontaneous
  Country: US (occurrence: US)
  Receive Date: 20191104
  Receipt Date: 20191104
  Transmission Date: 20200122
  Serious: No
  Sender: FDA-Public Use
  Company Number: None

PATIENT
  Age: 49 Year
  Sex: Female

DRUGS (1)
  1. MAVENCLAD [Suspect]
     Active Substance: CLADRIBINE
     Route: 048
     Dates: start: 201910

REACTIONS (5)
  - Asthenia [None]
  - Fatigue [None]
  - Aphonia [None]
  - Nausea [None]
  - Nasopharyngitis [None]

NARRATIVE: CASE EVENT DATE: 20191104
